FAERS Safety Report 7941056-9 (Version None)
Quarter: 2011Q4

REPORT INFORMATION
  Report Type: 
  Country: None (occurrence: None)
  Receive Date: 20111122
  Receipt Date: 20111109
  Transmission Date: 20120403
  Serious: Yes (Hospitalization)
  Sender: FDA-Public Use
  Company Number: 2011SP003824

PATIENT
  Age: 52 Year
  Sex: Female

DRUGS (11)
  1. LISINOPRIL [Concomitant]
  2. PERCOCET [Concomitant]
  3. ATROVENT [Concomitant]
  4. PAXIL [Concomitant]
  5. PREDNISONE [Concomitant]
  6. FUROSEMIDE [Concomitant]
  7. COREG [Concomitant]
  8. OXYCONTIN [Concomitant]
  9. OXYGEN [Concomitant]
  10. LUNESTA [Suspect]
     Indication: INSOMNIA
     Dosage: 3 MF, PRN, ORAL
     Route: 048
     Dates: start: 20111001, end: 20110101
  11. ASPIRIN [Concomitant]

REACTIONS (3)
  - DRUG INEFFECTIVE [None]
  - INITIAL INSOMNIA [None]
  - OXYGEN SATURATION DECREASED [None]
